FAERS Safety Report 11668580 (Version 4)
Quarter: 2016Q3

REPORT INFORMATION
  Report Type: Spontaneous
  Country: JP (occurrence: JP)
  Receive Date: 20151027
  Receipt Date: 20160725
  Transmission Date: 20161109
  Serious: Yes (Hospitalization, Other)
  Sender: FDA-Public Use
  Company Number: JP-GLAXOSMITHKLINE-JP2015JPN148996

PATIENT
  Age: 85 Year
  Sex: Male
  Weight: 58 kg

DRUGS (3)
  1. VALTREX [Suspect]
     Active Substance: VALACYCLOVIR HYDROCHLORIDE
     Indication: HERPES ZOSTER
     Dosage: 1000 MG, TID
     Route: 048
     Dates: start: 20151016, end: 20151019
  2. LYRICA [Suspect]
     Active Substance: PREGABALIN
     Route: 048
  3. VIDARABINE [Concomitant]
     Active Substance: VIDARABINE

REACTIONS (9)
  - Toxic encephalopathy [Recovered/Resolved]
  - Drug level increased [Unknown]
  - Renal impairment [Recovered/Resolved]
  - Gait disturbance [Recovering/Resolving]
  - Altered state of consciousness [Recovering/Resolving]
  - Tremor [Unknown]
  - Acute kidney injury [Recovered/Resolved]
  - Dyskinesia [Recovered/Resolved]
  - Blood creatinine increased [Unknown]

NARRATIVE: CASE EVENT DATE: 20151018
